FAERS Safety Report 8319215-5 (Version None)
Quarter: 2012Q2

REPORT INFORMATION
  Report Type: 
  Country: None (occurrence: None)
  Receive Date: 20120427
  Receipt Date: 20120419
  Transmission Date: 20120825
  Serious: Yes (Death, Hospitalization)
  Sender: FDA-Public Use
  Company Number: FR-MERCK-1204USA03274

PATIENT
  Age: 81 Year
  Sex: Male

DRUGS (14)
  1. PRIMAXIN [Suspect]
     Indication: LUNG DISORDER
     Route: 042
     Dates: start: 20120201, end: 20120223
  2. ORBENIN CAP [Concomitant]
     Route: 065
  3. IPRATROPIUM BROMIDE [Concomitant]
     Route: 065
  4. LOVENOX [Concomitant]
     Route: 065
  5. CORDARONE [Concomitant]
     Route: 065
  6. EUPRESSYL [Concomitant]
     Route: 065
  7. ALLOPURINOL [Concomitant]
     Route: 065
  8. BUMETANIDE [Concomitant]
     Route: 065
  9. NEORAL [Concomitant]
     Route: 065
  10. AMLODIPINE [Concomitant]
     Route: 065
  11. AUGMENTIN '125' [Concomitant]
     Indication: LUNG DISORDER
     Route: 065
     Dates: start: 20120202
  12. LEXOMIL [Concomitant]
     Route: 065
  13. ATORVASTATIN [Concomitant]
     Route: 065
  14. OFLOXACIN [Concomitant]
     Indication: LUNG DISORDER
     Route: 065
     Dates: start: 20120202

REACTIONS (3)
  - MULTI-ORGAN FAILURE [None]
  - CONFUSIONAL STATE [None]
  - STATUS EPILEPTICUS [None]
